FAERS Safety Report 11892815 (Version 1)
Quarter: 2016Q1

REPORT INFORMATION
  Report Type: Spontaneous
  Country: US (occurrence: US)
  Receive Date: 20160106
  Receipt Date: 20160106
  Transmission Date: 20160526
  Serious: No
  Sender: FDA-Public Use
  Company Number: US-PFIZER INC-2015362295

PATIENT
  Age: 34 Year
  Sex: Male
  Weight: 77.2 kg

DRUGS (11)
  1. ERBITUX [Concomitant]
     Active Substance: CETUXIMAB
     Dosage: UNK
  2. CAMPTOSAR [Suspect]
     Active Substance: IRINOTECAN HYDROCHLORIDE
     Dosage: 135 MG/M2, UNK (IN 5% DEXTROSE (DSW) 500 ML OVER 90 MINUTES ON DAY 1 ONLY)
     Route: 042
  3. CAMPTOSAR [Suspect]
     Active Substance: IRINOTECAN HYDROCHLORIDE
     Indication: RECTAL CANCER
     Dosage: 160 MG/M2, WEEKLY (1.9)
     Dates: start: 20151026
  4. CAMPTOSAR [Suspect]
     Active Substance: IRINOTECAN HYDROCHLORIDE
     Dosage: 304 MG, (EVERY TWO WEEKS)
     Route: 042
     Dates: start: 201510
  5. CAMPTOSAR [Suspect]
     Active Substance: IRINOTECAN HYDROCHLORIDE
     Dosage: 245 MG, UNK
     Route: 042
  6. AVASTIN [Concomitant]
     Active Substance: BEVACIZUMAB
     Indication: CHEMOTHERAPY
     Dosage: UNK
     Dates: start: 201510
  7. ZOFRAN [Concomitant]
     Active Substance: ONDANSETRON HYDROCHLORIDE
     Dosage: 16 MG, UNK (30 MINUTES PRIOR TO CHEMOTHERAPY ON DAY 1 ONLY)
     Route: 048
  8. NEUPOGEN [Concomitant]
     Active Substance: FILGRASTIM
     Dosage: UNK
  9. ATROPINE. [Concomitant]
     Active Substance: ATROPINE
     Dosage: 0.5 MG, AS NEEDED
     Route: 042
  10. DEXAMETHASONE. [Concomitant]
     Active Substance: DEXAMETHASONE
     Dosage: 20 MG, UNK (IVPB IN 0.9% SODIUM CHLORIDE (NS) 50 ML OVER 30 MINUTES PRIOR TO CHEMOTHERAPY ON DAY1)
  11. EMEND [Concomitant]
     Active Substance: APREPITANT
     Dosage: UNK

REACTIONS (1)
  - Weight decreased [Unknown]

NARRATIVE: CASE EVENT DATE: 201512
